FAERS Safety Report 18149910 (Version 1)
Quarter: 2020Q3

REPORT INFORMATION
  Report Type: Spontaneous
  Country: AE (occurrence: AE)
  Receive Date: 20200814
  Receipt Date: 20200814
  Transmission Date: 20201103
  Serious: Yes (Hospitalization)
  Sender: FDA-Public Use
  Company Number: AE-IPCA LABORATORIES LIMITED-IPC-2020-AE-002693

PATIENT

DRUGS (1)
  1. CHLOROQUINE TABLET [Suspect]
     Active Substance: CHLOROQUINE
     Indication: MALARIA PROPHYLAXIS
     Dosage: 300 MILLIGRAM (TWICE A WEEK)
     Route: 065

REACTIONS (10)
  - Delusional disorder, unspecified type [Recovered/Resolved]
  - Disorganised speech [Recovered/Resolved]
  - Insomnia [Recovered/Resolved]
  - Agitation [Recovered/Resolved]
  - Echolalia [Recovered/Resolved]
  - Abnormal behaviour [Recovered/Resolved]
  - Disorientation [Recovered/Resolved]
  - Psychomotor hyperactivity [Recovered/Resolved]
  - Tachyphrenia [Recovered/Resolved]
  - Logorrhoea [Recovered/Resolved]
